FAERS Safety Report 17003550 (Version 1)
Quarter: 2019Q4

REPORT INFORMATION
  Report Type: Spontaneous
  Country: US (occurrence: US)
  Receive Date: 20191107
  Receipt Date: 20191107
  Transmission Date: 20200122
  Serious: Yes (Life-Threatening, Hospitalization, Other)
  Sender: FDA-Public Use
  Company Number: US-TORRENT-00009462

PATIENT
  Age: 15 Year
  Sex: Female

DRUGS (1)
  1. AMLODIPINE [Suspect]
     Active Substance: AMLODIPINE BESYLATE
     Indication: HEADACHE
     Dosage: INGESTION
     Route: 048

REACTIONS (11)
  - Haemoptysis [Unknown]
  - Acute kidney injury [Unknown]
  - Circulatory collapse [Recovering/Resolving]
  - Vomiting [Unknown]
  - Accidental overdose [Unknown]
  - Respiratory failure [Recovering/Resolving]
  - Lactic acidosis [Unknown]
  - Tongue oedema [Unknown]
  - Respiratory distress [Unknown]
  - Non-cardiogenic pulmonary oedema [Unknown]
  - Multiple organ dysfunction syndrome [Unknown]
